FAERS Safety Report 16271108 (Version 1)
Quarter: 2019Q2

REPORT INFORMATION
  Report Type: Spontaneous
  Country: US (occurrence: US)
  Receive Date: 20190503
  Receipt Date: 20190503
  Transmission Date: 20190711
  Serious: No
  Sender: FDA-Public Use
  Company Number: US-ELI_LILLY_AND_COMPANY-US201904005918

PATIENT
  Sex: Female

DRUGS (7)
  1. KLONOPIN [Concomitant]
     Active Substance: CLONAZEPAM
     Indication: THINKING ABNORMAL
  2. LISINOPRIL. [Concomitant]
     Active Substance: LISINOPRIL
     Indication: PRODUCT USED FOR UNKNOWN INDICATION
  3. PAXIL PAROXETINE HYDROCHLORIDE [Concomitant]
     Indication: THINKING ABNORMAL
  4. PAXIL PAROXETINE HYDROCHLORIDE [Concomitant]
     Indication: NERVOUSNESS
  5. KLONOPIN [Concomitant]
     Active Substance: CLONAZEPAM
     Indication: NERVOUSNESS
     Dosage: UNK
  6. STRATTERA [Suspect]
     Active Substance: ATOMOXETINE HYDROCHLORIDE
     Indication: NERVOUSNESS
     Dosage: 40 MG, DAILY
     Route: 048
     Dates: start: 2014
  7. STRATTERA [Suspect]
     Active Substance: ATOMOXETINE HYDROCHLORIDE
     Indication: THINKING ABNORMAL
     Dosage: 10 MG, DAILY
     Route: 048
     Dates: start: 201903

REACTIONS (5)
  - Thinking abnormal [Not Recovered/Not Resolved]
  - Distractibility [Not Recovered/Not Resolved]
  - Underdose [Unknown]
  - Insomnia [Not Recovered/Not Resolved]
  - Fatigue [Not Recovered/Not Resolved]

NARRATIVE: CASE EVENT DATE: 201903
